FAERS Safety Report 9154937 (Version 1)
Quarter: 2013Q1

REPORT INFORMATION
  Report Type: Report from Study
  Country: US (occurrence: US)
  Receive Date: 20130311
  Receipt Date: 20130311
  Transmission Date: 20140127
  Serious: No
  Sender: FDA-Public Use
  Company Number: US-ABBOTT-12P-163-0964533-00

PATIENT
  Sex: Female

DRUGS (3)
  1. LUPRON DEPOT 11.25 MG [Suspect]
     Indication: UTERINE LEIOMYOMA
     Dates: start: 20120601
  2. IRON [Concomitant]
     Indication: MINERAL SUPPLEMENTATION
  3. FISH OIL [Concomitant]
     Indication: SUPPLEMENTATION THERAPY

REACTIONS (5)
  - Menstruation normal [Unknown]
  - Menstruation normal [Unknown]
  - Menorrhagia [Unknown]
  - Hot flush [Unknown]
  - Uterine leiomyoma [Unknown]
